FAERS Safety Report 9298717 (Version 1)
Quarter: 2013Q2

REPORT INFORMATION
  Report Type: Spontaneous
  Country: US (occurrence: US)
  Receive Date: 20130520
  Receipt Date: 20130520
  Transmission Date: 20140414
  Serious: Yes (Hospitalization)
  Sender: FDA-Public Use
  Company Number: US-GLAXOSMITHKLINE-A0789300A

PATIENT
  Age: 50 Year
  Sex: Female
  Weight: 96.4 kg

DRUGS (1)
  1. AVANDIA [Suspect]
     Indication: TYPE 2 DIABETES MELLITUS
     Dosage: 4MG PER DAY
     Route: 048
     Dates: start: 200311, end: 200410

REACTIONS (6)
  - Cardiac disorder [Not Recovered/Not Resolved]
  - Oedema [Unknown]
  - Amnesia [Unknown]
  - Decreased activity [Unknown]
  - Angina unstable [Unknown]
  - Acute coronary syndrome [Unknown]
